FAERS Safety Report 5908900-8 (Version None)
Quarter: 2008Q4

REPORT INFORMATION
  Report Type: 
  Country: None (occurrence: None)
  Receive Date: 20081006
  Receipt Date: 20080929
  Transmission Date: 20090506
  Serious: Yes (Disabling)
  Sender: FDA-Public Use
  Company Number: US-AVENTIS-200815035US

PATIENT
  Sex: Male

DRUGS (3)
  1. LOVENOX [Suspect]
     Dosage: DOSE: UNK
     Dates: start: 20070310
  2. ASPIRIN [Concomitant]
     Dosage: DOSE: 1/2 DF 325
     Route: 048
  3. LIPITOR [Concomitant]
     Route: 048

REACTIONS (6)
  - ASTHENIA [None]
  - INCORRECT ROUTE OF DRUG ADMINISTRATION [None]
  - MOBILITY DECREASED [None]
  - MYALGIA [None]
  - PAIN IN EXTREMITY [None]
  - PHYSICAL DISABILITY [None]
